FAERS Safety Report 9780160 (Version 2)
Quarter: 2013Q4

REPORT INFORMATION
  Report Type: Report from Study
  Country: BE (occurrence: BE)
  Receive Date: 20131223
  Receipt Date: 20131230
  Transmission Date: 20140711
  Serious: Yes (Hospitalization, Other)
  Sender: FDA-Public Use
  Company Number: PHHY2013BE146406

PATIENT
  Sex: Male
  Weight: 42 kg

DRUGS (8)
  1. INDACATEROL [Suspect]
     Indication: CHRONIC OBSTRUCTIVE PULMONARY DISEASE
     Dosage: 150 UG, PER DAY
     Route: 055
     Dates: start: 20130307
  2. DUOVENT [Concomitant]
     Indication: CHRONIC OBSTRUCTIVE PULMONARY DISEASE
     Dosage: 2 PUFFS
  3. SERETIDE [Concomitant]
     Dosage: 1 PUFF, BID
  4. DUROGESIC [Concomitant]
     Dosage: 25 UG, Q27H
  5. FORLAX [Concomitant]
     Dosage: 10 G, PRN
  6. LEXOTAN [Concomitant]
     Dosage: 6 MG, QD
  7. DICLOFENAC [Concomitant]
     Dosage: 75 MG, BID
  8. MEDROL [Concomitant]
     Dosage: 32 MG, QD

REACTIONS (9)
  - Acute myocardial infarction [Recovered/Resolved]
  - Duodenal ulcer haemorrhage [Recovered/Resolved]
  - Gastric haemorrhage [Unknown]
  - Anaemia [Recovered/Resolved]
  - Ischaemic cardiomyopathy [Unknown]
  - Oxygen consumption decreased [Unknown]
  - Fungal oesophagitis [Recovered/Resolved]
  - Bronchopneumonia [Recovered/Resolved]
  - Rectal prolapse [Unknown]
